FAERS Safety Report 18313763 (Version 1)
Quarter: 2020Q3

REPORT INFORMATION
  Report Type: Spontaneous
  Country: FR (occurrence: FR)
  Receive Date: 20200925
  Receipt Date: 20200925
  Transmission Date: 20201103
  Serious: Yes (Hospitalization, Disabling)
  Sender: FDA-Public Use
  Company Number: FR-JNJFOC-20200936852

PATIENT
  Age: 79 Year
  Sex: Female
  Weight: 45 kg

DRUGS (8)
  1. NICORANDIL [Concomitant]
     Active Substance: NICORANDIL
     Dosage: UNK
     Route: 048
  2. SIMVASTATINE [Concomitant]
     Active Substance: SIMVASTATIN
     Dosage: UNK
     Route: 048
  3. FLECAINE [Concomitant]
     Active Substance: FLECAINIDE
     Dosage: 100 MG
     Route: 048
  4. VERAPAMIL [Concomitant]
     Active Substance: VERAPAMIL HYDROCHLORIDE
     Dosage: UNK
     Route: 048
  5. DORZOLAMIDE [Concomitant]
     Active Substance: DORZOLAMIDE
     Dosage: UNK
     Route: 047
  6. RIVAROXABAN [Suspect]
     Active Substance: RIVAROXABAN
     Indication: PULMONARY EMBOLISM
     Dosage: 1 DF, QD
     Route: 048
     Dates: end: 20200116
  7. ACICLOVIR [Concomitant]
     Active Substance: ACYCLOVIR
     Dosage: UNK
     Route: 048
  8. QUININE [Concomitant]
     Active Substance: QUININE
     Dosage: UNK
     Route: 048

REACTIONS (3)
  - Cerebral haemorrhage [Recovered/Resolved with Sequelae]
  - Ataxia [Not Recovered/Not Resolved]
  - Facial paralysis [Not Recovered/Not Resolved]

NARRATIVE: CASE EVENT DATE: 20200116
